FAERS Safety Report 4270803-5 (Version None)
Quarter: 2004Q1

REPORT INFORMATION
  Report Type: 
  Country: None (occurrence: None)
  Receive Date: 20040114
  Receipt Date: 20010921
  Transmission Date: 20041129
  Serious: Yes (Other)
  Sender: FDA-Public Use
  Company Number: AU-BRISTOL-MYERS SQUIBB COMPANY-10995983

PATIENT
  Age: 64 Year
  Sex: Male
  Weight: 64 kg

DRUGS (5)
  1. ATORVASTATIN [Suspect]
     Dosage: MOST RECENT DOSE WAS ON 16-AUG-2001.
     Route: 048
     Dates: start: 20010731
  2. GATIFLOXACIN [Suspect]
     Dosage: DRUG WAS PERMANENTLY DISCONTINUED ON 15-AUG-2001.
     Route: 048
     Dates: start: 20010814, end: 20010815
  3. VERAPAMIL [Concomitant]
     Route: 048
     Dates: start: 20010724
  4. ISORDIL [Concomitant]
     Route: 048
     Dates: start: 20010724
  5. ASPIRIN [Concomitant]
     Route: 048
     Dates: start: 20010724

REACTIONS (3)
  - ABSCESS [None]
  - CLOSTRIDIUM COLITIS [None]
  - PROCTITIS [None]
